FAERS Safety Report 25166518 (Version 1)
Quarter: 2025Q2

REPORT INFORMATION
  Report Type: Spontaneous
  Country: CN (occurrence: CN)
  Receive Date: 20250407
  Receipt Date: 20250407
  Transmission Date: 20250716
  Serious: Yes (Other)
  Sender: NOVARTIS
  Company Number: CN-002147023-NVSC2025CN055402

PATIENT
  Age: 75 Year
  Sex: Female

DRUGS (4)
  1. SACUBITRIL\VALSARTAN [Suspect]
     Active Substance: SACUBITRIL\VALSARTAN
     Indication: Cardiac failure chronic
     Route: 065
  2. SACUBITRIL\VALSARTAN [Suspect]
     Active Substance: SACUBITRIL\VALSARTAN
     Indication: Cardiorenal syndrome
  3. FUROSEMIDE [Suspect]
     Active Substance: FUROSEMIDE
     Indication: Cardiac failure chronic
     Route: 065
  4. FUROSEMIDE [Suspect]
     Active Substance: FUROSEMIDE
     Indication: Cardiorenal syndrome

REACTIONS (9)
  - Oedema peripheral [Recovered/Resolved]
  - Dyspnoea [Recovering/Resolving]
  - Oliguria [Unknown]
  - Chest discomfort [Recovered/Resolved]
  - Poor quality sleep [Recovered/Resolved]
  - Appetite disorder [Recovered/Resolved]
  - Faeces hard [Recovered/Resolved]
  - Temperature intolerance [Unknown]
  - Hyperhidrosis [Unknown]
